FAERS Safety Report 4320033-3 (Version None)
Quarter: 2004Q1

REPORT INFORMATION
  Report Type: 
  Country: None (occurrence: None)
  Receive Date: 20040315
  Receipt Date: 20031223
  Transmission Date: 20041129
  Serious: No
  Sender: FDA-Public Use
  Company Number: 2003191801US

PATIENT

DRUGS (1)
  1. BEXTRA [Suspect]

REACTIONS (2)
  - DRUG HYPERSENSITIVITY [None]
  - SKIN LESION [None]
